FAERS Safety Report 6811635-0 (Version None)
Quarter: 2010Q3

REPORT INFORMATION
  Report Type: 
  Country: None (occurrence: None)
  Receive Date: 20100701
  Receipt Date: 20100621
  Transmission Date: 20110219
  Serious: No
  Sender: FDA-Public Use
  Company Number: US-BIOGENIDEC-2010BI021331

PATIENT
  Age: 39 Year
  Sex: Female

DRUGS (1)
  1. TYSABRI [Suspect]
     Indication: MULTIPLE SCLEROSIS
     Route: 042
     Dates: start: 20081111

REACTIONS (5)
  - CONTUSION [None]
  - DISCOMFORT [None]
  - NEURALGIA [None]
  - POOR VENOUS ACCESS [None]
  - SKIN INDURATION [None]
